FAERS Safety Report 5088308-0 (Version None)
Quarter: 2006Q3

REPORT INFORMATION
  Report Type: 
  Country: None (occurrence: None)
  Receive Date: 20060821
  Receipt Date: 20060811
  Transmission Date: 20061208
  Serious: Yes (Other)
  Sender: FDA-Public Use
  Company Number: 2006097776

PATIENT
  Age: 17 Year
  Sex: Female

DRUGS (1)
  1. BENADRYL [Suspect]
     Indication: INTENTIONAL OVERDOSE
     Dosage: 10 TABLETS ONCE, ORAL
     Route: 048

REACTIONS (3)
  - INCORRECT DOSE ADMINISTERED [None]
  - SELF-MEDICATION [None]
  - SOMNOLENCE [None]
